FAERS Safety Report 8427352-X (Version None)
Quarter: 2012Q2

REPORT INFORMATION
  Report Type: 
  Country: None (occurrence: None)
  Receive Date: 20120611
  Receipt Date: 20120604
  Transmission Date: 20120825
  Serious: Yes (Disabling, Other)
  Sender: FDA-Public Use
  Company Number: US-PFIZER INC-2012105339

PATIENT
  Sex: Female
  Weight: 83.447 kg

DRUGS (12)
  1. HYDROCODONE [Concomitant]
     Indication: PAIN
     Dosage: UNK
  2. LACTULOSE [Concomitant]
     Indication: CHRONIC HEPATIC FAILURE
     Dosage: 2 TABLESPOON DAILY
  3. NEURONTIN [Suspect]
     Dosage: 1200 MG, 3X/DAY
     Route: 048
     Dates: start: 20120301
  4. NEURONTIN [Suspect]
     Indication: NEUROPATHY PERIPHERAL
     Dosage: UNK
     Route: 048
  5. VENLAFAXINE [Concomitant]
     Indication: PAIN
     Dosage: 75 MG, DAILY
  6. NORVASC [Concomitant]
     Indication: HYPERTENSION
     Dosage: 10 MG, DAILY
     Dates: start: 20120301
  7. LISINOPRIL [Concomitant]
     Indication: HYPERTENSION
     Dosage: 40 MG, DAILY
  8. HUMULIN R [Concomitant]
     Indication: TYPE 2 DIABETES MELLITUS
     Dosage: UNK, 4X/DAY
  9. LASIX [Concomitant]
     Indication: FLUID RETENTION
     Dosage: 40 MG, DAILY
  10. SPIRONOLACTONE [Concomitant]
     Indication: FLUID RETENTION
     Dosage: 40 MG, DAILY
  11. COREG [Concomitant]
     Indication: HYPERTENSION
     Dosage: 6.25 MG, 2X/DAY
  12. TRAMADOL [Concomitant]
     Indication: PAIN
     Dosage: 50 MG, EVERY 6 HOURS

REACTIONS (3)
  - CHRONIC HEPATIC FAILURE [None]
  - NEUROPATHY PERIPHERAL [None]
  - TYPE 2 DIABETES MELLITUS [None]
